FAERS Safety Report 5941513-0 (Version None)
Quarter: 2008Q4

REPORT INFORMATION
  Report Type: 
  Country: None (occurrence: None)
  Receive Date: 20081103
  Receipt Date: 20081103
  Transmission Date: 20090506
  Serious: Yes (Death)
  Sender: FDA-Public Use
  Company Number: None

PATIENT
  Age: 49 Year
  Sex: Male
  Weight: 150 kg

DRUGS (2)
  1. ALTEPLASE 50MG GENENTECH, INC. [Suspect]
     Indication: DEEP VEIN THROMBOSIS
     Dosage: 18MG OVER 12 HOURS IV DRIP
     Route: 041
     Dates: start: 20081015, end: 20081015
  2. HEPARIN [Suspect]
     Indication: DEEP VEIN THROMBOSIS
     Dosage: 400UNITS/HR IV DRIP
     Route: 041
     Dates: start: 20081014, end: 20081015

REACTIONS (3)
  - BRAIN HERNIATION [None]
  - HAEMORRHAGE INTRACRANIAL [None]
  - PULMONARY EMBOLISM [None]
